FAERS Safety Report 14346289 (Version 1)
Quarter: 2018Q1

REPORT INFORMATION
  Report Type: Spontaneous
  Country: TR (occurrence: TR)
  Receive Date: 20180103
  Receipt Date: 20180103
  Transmission Date: 20180509
  Serious: Yes (Life-Threatening, Hospitalization, Other)
  Sender: FDA-Public Use
  Company Number: TR-ELI_LILLY_AND_COMPANY-TR201712011973

PATIENT
  Age: 41 Year
  Sex: Male

DRUGS (3)
  1. CISPLATIN. [Suspect]
     Active Substance: CISPLATIN
     Indication: BURKITT^S LYMPHOMA
     Dosage: UNK UNK, CYCLICAL
     Route: 065
  2. GEMCITABINE HYDROCHLORIDE. [Suspect]
     Active Substance: GEMCITABINE HYDROCHLORIDE
     Indication: BURKITT^S LYMPHOMA
     Dosage: UNK UNK, CYCLICAL
     Route: 065
  3. RITUXIMAB. [Suspect]
     Active Substance: RITUXIMAB
     Indication: BURKITT^S LYMPHOMA
     Dosage: UNK UNK, CYCLICAL
     Route: 065

REACTIONS (2)
  - Acute myocardial infarction [Unknown]
  - Coronary artery occlusion [Unknown]
